FAERS Safety Report 6279801-3 (Version None)
Quarter: 2009Q3

REPORT INFORMATION
  Report Type: 
  Country: None (occurrence: None)
  Receive Date: 20090723
  Receipt Date: 20090714
  Transmission Date: 20100115
  Serious: Yes (Other)
  Sender: FDA-Public Use
  Company Number: GB-PFIZER INC-2009240324

PATIENT

DRUGS (1)
  1. LYRICA [Suspect]
     Indication: EPILEPSY
     Dosage: 375 MG, 1X/DAY

REACTIONS (2)
  - AGGRESSION [None]
  - OBSESSIVE-COMPULSIVE PERSONALITY DISORDER [None]
